FAERS Safety Report 20461710 (Version 2)
Quarter: 2022Q3

REPORT INFORMATION
  Report Type: Spontaneous
  Country: FR (occurrence: FR)
  Receive Date: 20220211
  Receipt Date: 20220704
  Transmission Date: 20221026
  Serious: Yes (Hospitalization)
  Sender: FDA-Public Use
  Company Number: None

PATIENT
  Age: 24 Year
  Sex: Female

DRUGS (2)
  1. RINVOQ [Suspect]
     Active Substance: UPADACITINIB
     Indication: Dermatitis atopic
     Dosage: 15 MG/DAY
     Route: 048
     Dates: start: 202106, end: 20220201
  2. RINVOQ [Suspect]
     Active Substance: UPADACITINIB
     Dosage: 15 MG/DAY
     Route: 048
     Dates: start: 202202

REACTIONS (8)
  - Cerebellar infarction [Recovering/Resolving]
  - Vertigo [Unknown]
  - Discomfort [Recovering/Resolving]
  - Ataxia [Recovering/Resolving]
  - Musculoskeletal disorder [Recovering/Resolving]
  - Cerebellar ischaemia [Recovering/Resolving]
  - Balance disorder [Recovering/Resolving]
  - Headache [Unknown]

NARRATIVE: CASE EVENT DATE: 20220201
